FAERS Safety Report 7759981-0 (Version None)
Quarter: 2011Q3

REPORT INFORMATION
  Report Type: 
  Country: None (occurrence: None)
  Receive Date: 20110919
  Receipt Date: 20110913
  Transmission Date: 20111222
  Serious: Yes (Hospitalization)
  Sender: FDA-Public Use
  Company Number: US-MERCK-1109USA01481

PATIENT
  Age: 56 Year
  Sex: Female

DRUGS (3)
  1. PRINIVIL [Suspect]
     Route: 048
  2. FLUOXETINE [Concomitant]
     Route: 065
  3. POTASSIUM (UNSPECIFIED) [Suspect]
     Route: 048

REACTIONS (19)
  - HYPERKALAEMIA [None]
  - VENTRICULAR TACHYCARDIA [None]
  - LETHARGY [None]
  - PCO2 DECREASED [None]
  - PO2 INCREASED [None]
  - DEPRESSIVE SYMPTOM [None]
  - RENAL IMPAIRMENT [None]
  - BLOOD CHLORIDE INCREASED [None]
  - HAEMODIALYSIS [None]
  - UNRESPONSIVE TO STIMULI [None]
  - SUICIDE ATTEMPT [None]
  - INTENTIONAL OVERDOSE [None]
  - VENTRICULAR FIBRILLATION [None]
  - BLOOD PH DECREASED [None]
  - PULSELESS ELECTRICAL ACTIVITY [None]
  - BRADYCARDIA [None]
  - LABILE BLOOD PRESSURE [None]
  - RESPIRATION ABNORMAL [None]
  - CARDIAC ARREST [None]
